FAERS Safety Report 5678471-2 (Version None)
Quarter: 2008Q1

REPORT INFORMATION
  Report Type: 
  Country: None (occurrence: None)
  Receive Date: 20080325
  Receipt Date: 20080314
  Transmission Date: 20080703
  Serious: Yes (Other)
  Sender: FDA-Public Use
  Company Number: ES-JNJFOC-20070502796

PATIENT
  Age: 37 Year
  Sex: Male

DRUGS (2)
  1. INFLIXIMAB [Suspect]
     Indication: ANKYLOSING SPONDYLITIS
     Route: 042
  2. ETANERCEPT [Concomitant]
     Dosage: FOR 1 YEAR

REACTIONS (3)
  - ANKYLOSING SPONDYLITIS [None]
  - THERAPEUTIC RESPONSE DECREASED [None]
  - UVEITIS [None]
